FAERS Safety Report 14405295 (Version 1)
Quarter: 2018Q1

REPORT INFORMATION
  Report Type: Spontaneous
  Country: KR (occurrence: KR)
  Receive Date: 20180118
  Receipt Date: 20180118
  Transmission Date: 20180509
  Serious: Yes (Hospitalization, Other)
  Sender: FDA-Public Use
  Company Number: KR-BAYER-2018-009854

PATIENT
  Age: 73 Year
  Sex: Female

DRUGS (5)
  1. TICAGRELOR. [Concomitant]
     Active Substance: TICAGRELOR
     Indication: THROMBOSIS PROPHYLAXIS
     Dosage: 90 MG, UNK
  2. ACETYLSALICYLIC ACID({=100 MG) [Suspect]
     Active Substance: ASPIRIN
     Dosage: 300 MG, UNK
  3. TICAGRELOR. [Concomitant]
     Active Substance: TICAGRELOR
     Indication: THROMBOSIS PROPHYLAXIS
     Dosage: 90 MG, UNK
  4. ACETYLSALICYLIC ACID({=100 MG) [Suspect]
     Active Substance: ASPIRIN
     Dosage: 100 MG, UNK
  5. TICAGRELOR. [Concomitant]
     Active Substance: TICAGRELOR
     Indication: THROMBOSIS PROPHYLAXIS
     Dosage: 180 MG, UNK

REACTIONS (8)
  - Haemoglobin decreased [Recovering/Resolving]
  - Haematochezia [Unknown]
  - Drug administration error [None]
  - Labelled drug-drug interaction medication error [None]
  - Haemoptysis [Recovered/Resolved]
  - Colitis ischaemic [Unknown]
  - Mucosal haemorrhage [Recovering/Resolving]
  - Epistaxis [Recovered/Resolved]
